FAERS Safety Report 5218691-4 (Version None)
Quarter: 2007Q1

REPORT INFORMATION
  Report Type: 
  Country: None (occurrence: None)
  Receive Date: 20070122
  Receipt Date: 20070109
  Transmission Date: 20070707
  Serious: Yes (Hospitalization)
  Sender: FDA-Public Use
  Company Number: MEDI-0005278

PATIENT
  Age: 16 Day
  Sex: Female

DRUGS (1)
  1. SYNAGIS [Suspect]
     Dates: start: 20061219, end: 20061219

REACTIONS (5)
  - GAIT DISTURBANCE [None]
  - LETHARGY [None]
  - LOSS OF CONSCIOUSNESS [None]
  - NEONATAL DISORDER [None]
  - OXYGEN SATURATION DECREASED [None]
